FAERS Safety Report 6331865-4 (Version None)
Quarter: 2009Q3

REPORT INFORMATION
  Report Type: 
  Country: None (occurrence: None)
  Receive Date: 20090826
  Receipt Date: 20090814
  Transmission Date: 20100115
  Serious: Yes (Other)
  Sender: FDA-Public Use
  Company Number: 2009AP003357

PATIENT
  Age: 86 Year
  Sex: Female

DRUGS (2)
  1. AMIODARONE HCL [Suspect]
     Indication: ATRIAL FIBRILLATION
     Dosage: 200 MG;
  2. AMLODIPINE [Concomitant]

REACTIONS (2)
  - HEADACHE [None]
  - NEUROTOXICITY [None]
